FAERS Safety Report 5117929-1 (Version None)
Quarter: 2006Q3

REPORT INFORMATION
  Report Type: 
  Country: None (occurrence: None)
  Receive Date: 20060925
  Receipt Date: 20060912
  Transmission Date: 20061208
  Serious: Yes (Life-Threatening)
  Sender: FDA-Public Use
  Company Number: FABR-11653

PATIENT
  Age: 53 Year
  Sex: Male
  Weight: 70 kg

DRUGS (5)
  1. FABRAZYME [Suspect]
     Indication: FABRY'S DISEASE
     Dosage: 70 MG Q2WKS IV
     Route: 042
  2. CALCIUM GLUCONATE [Concomitant]
  3. OMEPRAZOLE [Concomitant]
  4. EPOGEN [Concomitant]
  5. METOPROLOL TARTRATE [Concomitant]

REACTIONS (6)
  - ABNORMAL BEHAVIOUR [None]
  - AGITATION [None]
  - DYSPNOEA [None]
  - HYPERTENSION [None]
  - INFUSION RELATED REACTION [None]
  - RASH GENERALISED [None]
